FAERS Safety Report 6142794-3 (Version None)
Quarter: 2009Q2

REPORT INFORMATION
  Report Type: 
  Country: None (occurrence: None)
  Receive Date: 20090402
  Receipt Date: 20090402
  Transmission Date: 20091009
  Serious: Yes (Death)
  Sender: FDA-Public Use
  Company Number: None

PATIENT
  Age: 75 Year
  Sex: Female

DRUGS (1)
  1. WARFARIN SODIUM [Suspect]
     Indication: CAROTID ARTERY STENOSIS
     Dosage: 4MG QHS PO
     Route: 048
     Dates: start: 20081202, end: 20081208

REACTIONS (3)
  - INTERNATIONAL NORMALISED RATIO INCREASED [None]
  - MEDICATION ERROR [None]
  - SUBDURAL HAEMORRHAGE [None]
